FAERS Safety Report 5032672-5 (Version None)
Quarter: 2006Q2

REPORT INFORMATION
  Report Type: 
  Country: None (occurrence: None)
  Receive Date: 20060620
  Receipt Date: 20060607
  Transmission Date: 20061013
  Serious: Yes (Hospitalization, Other)
  Sender: FDA-Public Use
  Company Number: 2006058402

PATIENT
  Age: 67 Year
  Sex: Female
  Weight: 70.3075 kg

DRUGS (16)
  1. CELEBREX [Suspect]
     Indication: ARTHRITIS
     Dosage: 200 MG (200 MG, 1 IN 1 D), ORAL
     Route: 048
     Dates: start: 19890101, end: 20040101
  2. POTASSIUM CHLORIDE [Concomitant]
  3. NORVASC [Concomitant]
  4. ASPIRIN [Concomitant]
  5. TENORMIN [Concomitant]
  6. PLAVIX [Concomitant]
  7. BUSPAR [Concomitant]
  8. AMARYL [Concomitant]
  9. IMIPRAMINE [Concomitant]
  10. LANTUS [Concomitant]
  11. ISORDIL [Concomitant]
  12. REGLAN [Concomitant]
  13. PROTONIX [Concomitant]
  14. ACTOS [Concomitant]
  15. ACCUPRIL [Concomitant]
  16. DEPAKOTE - SLOW RELEASE (VALPROATE SEMISODIUM) [Concomitant]

REACTIONS (5)
  - DIZZINESS [None]
  - MYOCARDIAL INFARCTION [None]
  - RENAL ARTERY STENOSIS [None]
  - RENAL DISORDER [None]
  - VASCULAR PSEUDOANEURYSM [None]
